FAERS Safety Report 5050923-8 (Version None)
Quarter: 2006Q3

REPORT INFORMATION
  Report Type: 
  Country: None (occurrence: None)
  Receive Date: 20060710
  Receipt Date: 20060619
  Transmission Date: 20061208
  Serious: Yes (Death)
  Sender: FDA-Public Use
  Company Number: 226989

PATIENT
  Age: 51 Year
  Sex: Female

DRUGS (5)
  1. AVASTIN [Suspect]
     Indication: COLORECTAL CANCER METASTATIC
     Dosage: 500 MG, Q3W, INTRAVENOUS
     Route: 042
     Dates: start: 20060519
  2. CAPECITABINE (CAPECITABINE) [Suspect]
     Indication: COLORECTAL CANCER METASTATIC
     Dosage: 4000 MG, ORAL
     Route: 048
     Dates: start: 20060519
  3. OXALIPLATIN (OXALIPLATIN) [Suspect]
     Indication: COLORECTAL CANCER METASTATIC
     Dosage: 260 MG, Q3W, INTRAVENOUS
     Route: 042
     Dates: start: 20060519
  4. MICROLAX (DODECYL SULFOACETIC ACID, GLYCERIN, LAURETH 9, SODIUM CITRAT [Concomitant]
  5. SLEEPING MEDICATION NOS (HYPNOTIC NOS) [Concomitant]

REACTIONS (5)
  - BLOOD LACTIC ACID INCREASED [None]
  - C-REACTIVE PROTEIN INCREASED [None]
  - CARDIAC VENTRICULAR DISORDER [None]
  - CARDIOGENIC SHOCK [None]
  - WHITE BLOOD CELL COUNT INCREASED [None]
